FAERS Safety Report 7179381-4 (Version None)
Quarter: 2010Q4

REPORT INFORMATION
  Report Type: 
  Country: None (occurrence: None)
  Receive Date: 20101221
  Receipt Date: 20101207
  Transmission Date: 20110411
  Serious: Yes (Hospitalization, Other)
  Sender: FDA-Public Use
  Company Number: PHHY2010JP74632

PATIENT
  Sex: Female

DRUGS (4)
  1. DIOVAN [Suspect]
     Indication: HYPERTENSION
     Dosage: 80 MG
     Route: 048
     Dates: start: 20080612, end: 20090330
  2. DIOVAN [Suspect]
     Dosage: UNK
     Dates: start: 20090416
  3. AMLODIN [Concomitant]
     Indication: HYPERTENSION
     Dosage: UNK
     Route: 048
     Dates: start: 20070516, end: 20090330
  4. PROPIVERINE HYDROCHLORIDE [Concomitant]
     Dosage: 10 MG
     Route: 048
     Dates: start: 20070516, end: 20090330

REACTIONS (4)
  - BLOOD PRESSURE DIASTOLIC DECREASED [None]
  - FALL [None]
  - FEMUR FRACTURE [None]
  - SURGERY [None]
